FAERS Safety Report 21215909 (Version 2)
Quarter: 2023Q1

REPORT INFORMATION
  Report Type: Spontaneous
  Country: VN (occurrence: VN)
  Receive Date: 20220816
  Receipt Date: 20230110
  Transmission Date: 20230417
  Serious: Yes (Other)
  Sender: FDA-Public Use
  Company Number: VN-BAYER-2022P010816

PATIENT
  Age: 48 Year
  Sex: Female
  Weight: 45 kg

DRUGS (1)
  1. ULTRAVIST [Suspect]
     Active Substance: IOPROMIDE
     Indication: Abdominal pain
     Dosage: 5 ML, ONCE
     Route: 042
     Dates: start: 20220809, end: 20220809

REACTIONS (7)
  - Peripheral coldness [Recovered/Resolved]
  - Hyperhidrosis [Recovered/Resolved]
  - Rash erythematous [Recovered/Resolved]
  - Contrast media reaction [Recovered/Resolved]
  - Tremor [Recovered/Resolved]
  - Nausea [Recovered/Resolved]
  - Rash [Recovered/Resolved]

NARRATIVE: CASE EVENT DATE: 20220809
